FAERS Safety Report 10963462 (Version 1)
Quarter: 2015Q1

REPORT INFORMATION
  Report Type: Spontaneous
  Country: US (occurrence: None)
  Receive Date: 20150327
  Receipt Date: 20150327
  Transmission Date: 20150721
  Serious: Yes (Hospitalization)
  Sender: FDA-Public Use
  Company Number: None

PATIENT
  Age: 2 Year
  Sex: Male
  Weight: 11.7 kg

DRUGS (2)
  1. DEXAMETHASONE. [Suspect]
     Active Substance: DEXAMETHASONE
     Dates: end: 20150318
  2. VINCRISTINE SULFATE. [Suspect]
     Active Substance: VINCRISTINE SULFATE
     Dates: end: 20150317

REACTIONS (7)
  - Pain [None]
  - Peroneal nerve palsy [None]
  - Peripheral sensory neuropathy [None]
  - Muscular weakness [None]
  - Osteosclerosis [None]
  - Bone lesion [None]
  - Gait disturbance [None]

NARRATIVE: CASE EVENT DATE: 20150318
